FAERS Safety Report 13726611 (Version 2)
Quarter: 2017Q3

REPORT INFORMATION
  Report Type: Spontaneous
  Country: ES (occurrence: ES)
  Receive Date: 20170707
  Receipt Date: 20170717
  Transmission Date: 20171127
  Serious: No
  Sender: FDA-Public Use
  Company Number: ES-009507513-1706ESP010323

PATIENT
  Age: 56 Year
  Sex: Female

DRUGS (1)
  1. CELESTONE CRONODOSE [Suspect]
     Active Substance: BETAMETHASONE
     Indication: ORAL PAIN
     Dosage: 2 ML, ONCE IN THE MORNING
     Route: 030
     Dates: start: 20170615, end: 20170615

REACTIONS (7)
  - Dizziness [Not Recovered/Not Resolved]
  - Nausea [Not Recovered/Not Resolved]
  - Dry mouth [Not Recovered/Not Resolved]
  - Muscle spasms [Not Recovered/Not Resolved]
  - Abdominal discomfort [Not Recovered/Not Resolved]
  - Abdominal distension [Not Recovered/Not Resolved]
  - Malaise [Not Recovered/Not Resolved]

NARRATIVE: CASE EVENT DATE: 20170615
